FAERS Safety Report 5532024-5 (Version None)
Quarter: 2007Q4

REPORT INFORMATION
  Report Type: 
  Country: None (occurrence: None)
  Receive Date: 20071203
  Receipt Date: 20071126
  Transmission Date: 20080405
  Serious: Yes (Other)
  Sender: FDA-Public Use
  Company Number: PHEH2005US07991

PATIENT
  Age: 48 Year
  Sex: Female
  Weight: 56.235 kg

DRUGS (14)
  1. ESTRADERM [Suspect]
     Indication: HORMONE REPLACEMENT THERAPY
     Dosage: UNK, UNK
     Route: 062
     Dates: start: 19950701, end: 19970701
  2. PREMARIN [Suspect]
     Indication: HORMONE REPLACEMENT THERAPY
     Dosage: 1.25MG UNK
     Dates: start: 19940801
  3. PREMARIN [Suspect]
     Dosage: 0.625MG UNK
     Dates: end: 19980901
  4. PROVERA [Suspect]
     Indication: HORMONE REPLACEMENT THERAPY
     Dosage: 10MG
     Dates: start: 19930601, end: 19980901
  5. PROVERA [Suspect]
     Dosage: 2.5MG
     Dates: start: 19940801, end: 19980901
  6. ESTRATEST [Suspect]
     Indication: HORMONE REPLACEMENT THERAPY
     Dosage: 1.25MG UNK
     Dates: start: 19950101, end: 19950101
  7. ESTRACE [Suspect]
     Indication: HORMONE REPLACEMENT THERAPY
     Dosage: UNK, UNK
     Dates: start: 19970701, end: 19970801
  8. ORTHO-NOVIN [Concomitant]
     Dates: start: 19970101
  9. MICRONOR [Concomitant]
     Dates: start: 19940101
  10. WIGRAINE [Concomitant]
     Indication: MIGRAINE
     Dates: start: 19700101, end: 20000101
  11. ZOLOFT [Concomitant]
     Indication: DEPRESSION
     Dates: start: 19960101, end: 19960101
  12. PAXIL [Concomitant]
     Indication: DEPRESSION
     Dosage: 20MG
     Dates: start: 19960807, end: 19961001
  13. PAXIL [Concomitant]
     Dosage: 20MG
     Dates: start: 19970421, end: 19970701
  14. PROZAC [Concomitant]
     Dosage: 20MG
     Dates: start: 19970327, end: 19970401

REACTIONS (18)
  - ANXIETY [None]
  - ARTHRALGIA [None]
  - BONE MARROW OEDEMA [None]
  - BREAST CANCER [None]
  - BREAST DISORDER FEMALE [None]
  - BREAST MASS [None]
  - BREAST PROSTHESIS IMPLANTATION [None]
  - BREAST RECONSTRUCTION [None]
  - DEPRESSION [None]
  - DISABILITY [None]
  - FALL [None]
  - IMPAIRED HEALING [None]
  - INJURY [None]
  - JOINT INSTABILITY [None]
  - MASTECTOMY [None]
  - MUSCLE DISORDER [None]
  - PAIN [None]
  - RADIUS FRACTURE [None]
